FAERS Safety Report 9022999 (Version 1)
Quarter: 2013Q1

REPORT INFORMATION
  Report Type: Spontaneous
  Country: US (occurrence: US)
  Receive Date: 20130120
  Receipt Date: 20130120
  Transmission Date: 20140127
  Serious: No
  Sender: FDA-Public Use
  Company Number: US-ALLERGAN-1215729US

PATIENT
  Sex: Male

DRUGS (4)
  1. BOTOX? [Suspect]
     Indication: HEADACHE
     Dosage: UNK, SINGLE
     Route: 030
     Dates: start: 20121102, end: 20121102
  2. BOTOX? [Suspect]
     Dosage: 4 UNITS, SINGLE
     Route: 030
     Dates: start: 20121026, end: 20121026
  3. ZOCOR [Concomitant]
     Indication: BLOOD CHOLESTEROL INCREASED
     Dosage: UNK
  4. AMBIEN [Concomitant]
     Indication: INSOMNIA
     Dosage: UNK

REACTIONS (2)
  - Drug ineffective [Unknown]
  - Drug ineffective [Unknown]
